FAERS Safety Report 8840378 (Version 2)
Quarter: 2015Q3

REPORT INFORMATION
  Report Type: Report from Study
  Country: US (occurrence: US)
  Receive Date: 20121015
  Receipt Date: 20150818
  Transmission Date: 20151125
  Serious: Yes (Other)
  Sender: FDA-Public Use
  Company Number: US-ROCHE-1136473

PATIENT
  Sex: Female

DRUGS (2)
  1. NUTROPIN AQ [Suspect]
     Active Substance: SOMATROPIN
     Indication: DWARFISM
     Route: 065
     Dates: start: 20000831
  2. LUPRON [Concomitant]
     Active Substance: LEUPROLIDE ACETATE
     Indication: GROWTH HORMONE DEFICIENCY
     Route: 065

REACTIONS (10)
  - Aphthous ulcer [Unknown]
  - Diplegia [Unknown]
  - Enuresis [Recovering/Resolving]
  - Oral viral infection [Unknown]
  - Ear infection [Unknown]
  - Weight increased [Unknown]
  - Meningeal disorder [Unknown]
  - Headache [Unknown]
  - Nephrogenic diabetes insipidus [Recovering/Resolving]
  - Red reflex abnormal [Unknown]
